FAERS Safety Report 5512219-7 (Version None)
Quarter: 2007Q4

REPORT INFORMATION
  Report Type: 
  Country: None (occurrence: None)
  Receive Date: 20071112
  Receipt Date: 20071101
  Transmission Date: 20080405
  Serious: Yes (Hospitalization)
  Sender: FDA-Public Use
  Company Number: PHHO2007IL17633

PATIENT
  Age: 77 Year
  Sex: Male
  Weight: 78 kg

DRUGS (7)
  1. INDACTEROL VS FORMOTEROL VS PLACEBO [Suspect]
     Indication: CHRONIC OBSTRUCTIVE PULMONARY DISEASE
     Dosage: 12 UG, BID
     Dates: start: 20070306, end: 20071017
  2. ENALAPRIL MALEATE [Concomitant]
     Indication: MYOCARDIAL ISCHAEMIA
  3. ATORVASTATIN CALCIUM [Concomitant]
     Indication: MYOCARDIAL ISCHAEMIA
  4. DILTIAZEM [Suspect]
     Indication: MYOCARDIAL ISCHAEMIA
  5. ASPIRIN [Concomitant]
     Indication: MYOCARDIAL ISCHAEMIA
  6. FLUTICASONE PROPIONATE [Concomitant]
     Indication: CHRONIC OBSTRUCTIVE PULMONARY DISEASE
  7. ALBUTEROL [Concomitant]
     Indication: CHRONIC OBSTRUCTIVE PULMONARY DISEASE

REACTIONS (4)
  - ATRIAL FIBRILLATION [None]
  - CARDIAC FAILURE [None]
  - CARDIOVERSION [None]
  - ELECTROCARDIOGRAM QT PROLONGED [None]
